FAERS Safety Report 9821575 (Version 1)
Quarter: 2014Q1

REPORT INFORMATION
  Report Type: Spontaneous
  Country: IT (occurrence: IT)
  Receive Date: 20140116
  Receipt Date: 20140116
  Transmission Date: 20141002
  Serious: Yes (Hospitalization)
  Sender: FDA-Public Use
  Company Number: IT-BAYER-2014-005871

PATIENT
  Age: 44 Year
  Sex: Male

DRUGS (4)
  1. CARDIOASPIRIN [Suspect]
     Dosage: 300 MG, QD
     Route: 048
     Dates: start: 20130101, end: 20131201
  2. RAMIPRIL [Concomitant]
     Dosage: DAILY DOSE 10 MG
     Route: 048
  3. BISOPROLOL [Concomitant]
     Dosage: DAILY DOSE 1 DF
     Route: 048
  4. SIMVASTATIN [Concomitant]
     Dosage: DAILY DOSE 1 DF
     Route: 048

REACTIONS (4)
  - Haematochezia [Unknown]
  - Diarrhoea [Unknown]
  - Abdominal pain [Unknown]
  - Strangury [Unknown]
